FAERS Safety Report 7586345-5 (Version None)
Quarter: 2011Q3

REPORT INFORMATION
  Report Type: 
  Country: None (occurrence: None)
  Receive Date: 20110701
  Receipt Date: 20110627
  Transmission Date: 20111222
  Serious: Yes (Hospitalization)
  Sender: FDA-Public Use
  Company Number: JP-ABBOTT-11P-087-0834839-00

PATIENT
  Sex: Male
  Weight: 59.6 kg

DRUGS (5)
  1. HUMIRA [Suspect]
     Indication: CROHN'S DISEASE
     Route: 058
     Dates: start: 20101118, end: 20101202
  2. HUMIRA [Suspect]
     Dates: start: 20101216
  3. MESALAZINE [Concomitant]
     Indication: CROHN'S DISEASE
     Route: 048
  4. ENTERAL NUTRITION [Concomitant]
     Indication: ENTERAL NUTRITION
  5. AZATHIOPRINE [Concomitant]
     Indication: CROHN'S DISEASE
     Route: 048
     Dates: start: 20101118, end: 20101125

REACTIONS (3)
  - DIARRHOEA [None]
  - HYPERAMYLASAEMIA [None]
  - ABDOMINAL PAIN UPPER [None]
